FAERS Safety Report 5431043-7 (Version None)
Quarter: 2007Q3

REPORT INFORMATION
  Report Type: 
  Country: None (occurrence: None)
  Receive Date: 20070830
  Receipt Date: 20070122
  Transmission Date: 20080115
  Serious: No
  Sender: FDA-Public Use
  Company Number: A0636599A

PATIENT
  Sex: Female

DRUGS (1)
  1. WELLBUTRIN XL [Suspect]
     Indication: DRUG USE FOR UNKNOWN INDICATION
     Dosage: 300MG PER DAY
     Route: 048
     Dates: start: 20061101

REACTIONS (2)
  - ENERGY INCREASED [None]
  - HYPOGEUSIA [None]
